FAERS Safety Report 19022347 (Version 1)
Quarter: 2021Q1

REPORT INFORMATION
  Report Type: Spontaneous
  Country: US (occurrence: US)
  Receive Date: 20210317
  Receipt Date: 20210317
  Transmission Date: 20210420
  Serious: No
  Sender: FDA-Public Use
  Company Number: US-TEVA-2021-US-1890144

PATIENT
  Age: 79 Year
  Sex: Female

DRUGS (1)
  1. LOSARTAN POTASSIUM. [Suspect]
     Active Substance: LOSARTAN POTASSIUM
     Dosage: OVAL WHITE PILL WITH I IMPRINTED ON ONE SIDE AND 6 ON THE OTHER SIDE
     Route: 065

REACTIONS (1)
  - Dizziness [Not Recovered/Not Resolved]
